FAERS Safety Report 9392266 (Version 2)
Quarter: 2013Q3

REPORT INFORMATION
  Report Type: Spontaneous
  Country: IE (occurrence: IE)
  Receive Date: 20130710
  Receipt Date: 20130722
  Transmission Date: 20140515
  Serious: Yes (Hospitalization, Disabling)
  Sender: FDA-Public Use
  Company Number: IE-ROCHE-1241154

PATIENT
  Age: 53 Year
  Sex: Female

DRUGS (6)
  1. BONVIVA [Suspect]
     Indication: OSTEOPOROSIS
     Route: 048
     Dates: start: 20130610, end: 201306
  2. AMITRIPTYLINE [Concomitant]
     Indication: BACK PAIN
     Dosage: NOCTE
     Route: 048
  3. DIAZEPAM [Concomitant]
     Indication: BACK PAIN
     Dosage: NOCTE
     Route: 048
  4. BACLOFEN [Concomitant]
     Indication: BACK PAIN
     Route: 065
  5. DICLOFENAC [Concomitant]
     Indication: BACK PAIN
     Route: 048
  6. TRAMADOL [Concomitant]
     Indication: BACK PAIN
     Route: 048

REACTIONS (13)
  - Headache [Not Recovered/Not Resolved]
  - Pyrexia [Not Recovered/Not Resolved]
  - Pain [Not Recovered/Not Resolved]
  - Sensation of foreign body [Not Recovered/Not Resolved]
  - Erythema [Not Recovered/Not Resolved]
  - Rash [Recovered/Resolved]
  - Lethargy [Not Recovered/Not Resolved]
  - Chills [Not Recovered/Not Resolved]
  - Myalgia [Not Recovered/Not Resolved]
  - Arthralgia [Not Recovered/Not Resolved]
  - Bone pain [Not Recovered/Not Resolved]
  - Urinary retention [Not Recovered/Not Resolved]
  - Nausea [Not Recovered/Not Resolved]
